FAERS Safety Report 25182911 (Version 2)
Quarter: 2025Q2

REPORT INFORMATION
  Report Type: Report from Study
  Country: KR (occurrence: KR)
  Receive Date: 20250410
  Receipt Date: 20250421
  Transmission Date: 20250716
  Serious: Yes (Hospitalization)
  Sender: ABBVIE
  Company Number: KR-ABBVIE-6003965

PATIENT
  Age: 36 Year
  Sex: Male
  Weight: 75 kg

DRUGS (4)
  1. RINVOQ [Suspect]
     Active Substance: UPADACITINIB
     Indication: Crohn^s disease
     Route: 048
     Dates: start: 20240911, end: 20241203
  2. RINVOQ [Suspect]
     Active Substance: UPADACITINIB
     Indication: Crohn^s disease
     Route: 048
     Dates: start: 20241204, end: 20250310
  3. RINVOQ [Suspect]
     Active Substance: UPADACITINIB
     Indication: Crohn^s disease
     Route: 048
     Dates: start: 20250313
  4. PENTASA [Concomitant]
     Active Substance: MESALAMINE
     Indication: Crohn^s disease
     Route: 048
     Dates: start: 20240910

REACTIONS (2)
  - Abdominal pain [Recovered/Resolved]
  - Small intestinal stenosis [Recovered/Resolved]

NARRATIVE: CASE EVENT DATE: 20241106
